FAERS Safety Report 24630813 (Version 4)
Quarter: 2025Q1

REPORT INFORMATION
  Report Type: Spontaneous
  Country: US (occurrence: US)
  Receive Date: 20241118
  Receipt Date: 20250205
  Transmission Date: 20250408
  Serious: Yes (Death)
  Sender: PFIZER
  Company Number: US-PFIZER INC-PV202400127729

PATIENT
  Age: 57 Year
  Sex: Female
  Weight: 67.937 kg

DRUGS (17)
  1. TUKYSA [Suspect]
     Active Substance: TUCATINIB
     Indication: Breast cancer metastatic
     Dosage: 150 MG, 2X/DAY
     Route: 048
     Dates: start: 20240904, end: 20240926
  2. TUKYSA [Suspect]
     Active Substance: TUCATINIB
     Indication: Breast cancer female
     Dosage: 150MG TAKE 2 CAPS BID/TAKE 2 TABLETS (300 MG) BY MOUTH 2 TIMES A DAY
     Route: 048
  3. TRASTUZUMAB [Suspect]
     Active Substance: TRASTUZUMAB
     Indication: Breast cancer
  4. XELODA [Suspect]
     Active Substance: CAPECITABINE
     Indication: Breast cancer
     Route: 048
     Dates: start: 20240830, end: 20240930
  5. XELODA [Suspect]
     Active Substance: CAPECITABINE
  6. OGIVRI [Concomitant]
     Active Substance: TRASTUZUMAB-DKST
     Indication: Osteoporotic fracture
     Route: 042
  7. PROLIA [Concomitant]
     Active Substance: DENOSUMAB
     Indication: Osteoporotic fracture
  8. TYLENOL [Concomitant]
     Active Substance: ACETAMINOPHEN
     Indication: Pain management
     Route: 048
     Dates: start: 20240904
  9. TYLENOL [Concomitant]
     Active Substance: ACETAMINOPHEN
     Indication: Pain
  10. ALPHAGAN P [Concomitant]
     Active Substance: BRIMONIDINE TARTRATE
     Indication: Somnolence
     Dosage: ADMINISTER 1 DROP INTO BOTH EYES 2 TIMES A DAY
  11. CALCIUM\VITAMIN D [Concomitant]
     Active Substance: CALCIUM\VITAMIN D
     Route: 048
  12. DECADRON [Concomitant]
     Active Substance: DEXAMETHASONE
     Dosage: TAKE 2 TABLETS (2 MG) BY MOUTH DAILY WITH A MEAL
     Route: 048
     Dates: start: 20240801
  13. COZAAR [Concomitant]
     Active Substance: LOSARTAN POTASSIUM
     Dosage: TAKE 50 MG BY MOUTH ONCE DAILY
     Route: 048
     Dates: start: 20230926
  14. ZOFRAN [Concomitant]
     Active Substance: ONDANSETRON HYDROCHLORIDE
     Indication: Nausea
     Route: 048
     Dates: start: 20200925
  15. ZOFRAN [Concomitant]
     Active Substance: ONDANSETRON HYDROCHLORIDE
     Indication: Vomiting
     Route: 048
     Dates: start: 20240827, end: 20240930
  16. CRESTOR [Concomitant]
     Active Substance: ROSUVASTATIN CALCIUM
     Dosage: TAKE 10 MG BY MOUTH NIGHTLY
     Route: 048
     Dates: start: 20230926
  17. COMPAZINE [Concomitant]
     Active Substance: PROCHLORPERAZINE MALEATE
     Route: 048
     Dates: start: 20240827, end: 20240930

REACTIONS (9)
  - Death [Fatal]
  - Blood calcium decreased [Unknown]
  - Alanine aminotransferase increased [Unknown]
  - Aspartate aminotransferase increased [Unknown]
  - Blood sodium decreased [Unknown]
  - Blood urea increased [Unknown]
  - Heart rate increased [Unknown]
  - Performance status decreased [Unknown]
  - Fall [Unknown]

NARRATIVE: CASE EVENT DATE: 20240101
